FAERS Safety Report 24388005 (Version 1)
Quarter: 2024Q4

REPORT INFORMATION
  Report Type: Spontaneous
  Country: AT (occurrence: AT)
  Receive Date: 20241002
  Receipt Date: 20241002
  Transmission Date: 20250114
  Serious: Yes (Other)
  Sender: ALEXION PHARMACEUTICALS
  Company Number: AT-AstraZeneca-CH-00709066A

PATIENT
  Age: 24 Year
  Weight: 49 kg

DRUGS (1)
  1. DANICOPAN [Suspect]
     Active Substance: DANICOPAN
     Indication: Paroxysmal nocturnal haemoglobinuria
     Dosage: 150 MILLIGRAM, TID

REACTIONS (2)
  - Drug eruption [Recovered/Resolved]
  - Pruritus [Unknown]
